FAERS Safety Report 8758916 (Version 1)
Quarter: 2012Q4

REPORT INFORMATION
  Report Type: 
  Country: US (occurrence: US)
  Receive Date: 20120829
  Receipt Date: 20120829
  Transmission Date: 20130627
  Serious: Yes (Hospitalization, Other)
  Sender: FDA-Public Use
  Company Number: US-UCBSA-063853

PATIENT
  Age: 26 Month
  Sex: Male
  Weight: 15.7 kg

DRUGS (17)
  1. VIMPAT [Suspect]
     Indication: CONVULSION
     Dosage: G-TUBE
     Dates: start: 20120525, end: 2012
  2. VIMPAT [Suspect]
     Indication: CONVULSION
     Dosage: 25 MG QAM AND 37.5 MG QHS PER G-TUBE
     Dates: start: 2012, end: 2012
  3. VIMPAT [Suspect]
     Indication: CONVULSION
     Dosage: G-TUBE, 12.5 MG
     Dates: start: 201207, end: 2012
  4. VIMPAT [Suspect]
     Indication: CONVULSION
     Dosage: G-TUBE
     Dates: start: 201208, end: 201208
  5. KEPPRA [Suspect]
     Indication: EPILEPSY
     Dosage: G-TUBE
     Dates: start: 201205
  6. ATIVAN [Concomitant]
     Indication: CENTRAL PAIN SYNDROME
  7. DIASTAT [Concomitant]
     Route: 054
  8. MIRALAX [Concomitant]
     Dosage: G-TUBE,QHS
  9. POLYVISOL WITH IRON [Concomitant]
     Dosage: G-TUBE
  10. ALBUTEROL [Concomitant]
     Dosage: 2.5 MG/3ML Q4 HOUR PRN
  11. BACITRACIN [Concomitant]
     Dosage: TO ARM FOR 7 DAYS
  12. CALCIUM CARBONATE [Concomitant]
     Dosage: G-TUBE
  13. CLONIDINE [Concomitant]
  14. IPRATROPIUM [Concomitant]
     Indication: RESPIRATORY DISTRESS
  15. NAPHAZOLINE-PHENIRAME [Concomitant]
     Route: 047
  16. KLONOPIN [Concomitant]
     Dosage: 0.5 MG BID+ 0.25 IN AFTERNOON
  17. GABAPENTIN [Concomitant]
     Dosage: 150

REACTIONS (8)
  - Convulsion [Unknown]
  - Bradycardia [Recovered/Resolved]
  - Mental status changes [Recovered/Resolved]
  - Heart rate irregular [Unknown]
  - Oxygen saturation decreased [Unknown]
  - Aspiration [Unknown]
  - Respiratory distress [Unknown]
  - Vomiting [Unknown]
